FAERS Safety Report 9832371 (Version 2)
Quarter: 2014Q1

REPORT INFORMATION
  Report Type: Spontaneous
  Country: US (occurrence: US)
  Receive Date: 20140121
  Receipt Date: 20140210
  Transmission Date: 20141002
  Serious: Yes (Other)
  Sender: FDA-Public Use
  Company Number: US-BAXTER-2014BAX001781

PATIENT
  Age: 60 Year
  Sex: Male

DRUGS (4)
  1. DIANEAL LOW CALCIUM [Suspect]
     Indication: PERITONEAL DIALYSIS
     Route: 033
     Dates: start: 2000
  2. DIANEAL LOW CALCIUM [Suspect]
     Indication: PERITONEAL DIALYSIS
     Route: 033
     Dates: start: 2000
  3. EXTRANEAL [Suspect]
     Indication: PERITONEAL DIALYSIS
     Route: 033
     Dates: start: 2000
  4. EXTRANEAL [Suspect]
     Indication: PERITONEAL DIALYSIS

REACTIONS (3)
  - Peritonitis bacterial [Recovered/Resolved]
  - Peritoneal dialysis complication [Unknown]
  - Catheter site infection [Recovered/Resolved]
